FAERS Safety Report 17172243 (Version 1)
Quarter: 2019Q4

REPORT INFORMATION
  Report Type: Spontaneous
  Country: FR (occurrence: FR)
  Receive Date: 20191218
  Receipt Date: 20191218
  Transmission Date: 20200122
  Serious: Yes (Other)
  Sender: FDA-Public Use
  Company Number: FR-GALDERMA-FR19063129

PATIENT

DRUGS (15)
  1. EPIDUO [Suspect]
     Active Substance: ADAPALENE\BENZOYL PEROXIDE
     Indication: ACNE
     Route: 061
     Dates: start: 20110302
  2. ERYFLUID [Concomitant]
     Active Substance: ERYTHROMYCIN
     Indication: ACNE
     Route: 061
     Dates: start: 20130605
  3. MINOLIS [Concomitant]
     Route: 065
     Dates: start: 20110907, end: 20111207
  4. CURACNE [Concomitant]
     Active Substance: ISOTRETINOIN
     Indication: ACNE
     Dosage: 40MG
     Route: 048
     Dates: start: 20050921, end: 20051121
  5. CURACNE [Concomitant]
     Active Substance: ISOTRETINOIN
     Dosage: 20MG
     Route: 048
     Dates: start: 20060222, end: 200607
  6. RUBOZINC [Concomitant]
     Active Substance: ZINC GLUCONATE
     Dosage: 1 DF, QD (1/DAY)
     Route: 065
     Dates: start: 20130920
  7. TOLEXINE [Concomitant]
     Active Substance: DOXYCYCLINE
     Indication: ACNE
     Route: 065
     Dates: start: 20150402, end: 20150702
  8. TETRALYSAL [TETRACYCLINE] [Suspect]
     Active Substance: TETRACYCLINE
     Indication: ACNE
     Route: 048
     Dates: start: 20120307, end: 20120423
  9. ISOTRETINOIN. [Concomitant]
     Active Substance: ISOTRETINOIN
     Dosage: 15 MG, SINGLE INTAKE
     Route: 048
     Dates: start: 20160101, end: 20160101
  10. ISOTRETINOIN. [Concomitant]
     Active Substance: ISOTRETINOIN
     Indication: ACNE
     Dosage: 20 MG
     Route: 048
     Dates: start: 20061127, end: 20090310
  11. RUBOZINC [Concomitant]
     Active Substance: ZINC GLUCONATE
     Indication: ACNE
     Route: 065
     Dates: start: 20130605
  12. RUBOZINC [Concomitant]
     Active Substance: ZINC GLUCONATE
     Route: 065
     Dates: start: 20140422
  13. GRANUDOXY [Concomitant]
     Active Substance: DOXYCYCLINE
     Indication: ACNE
     Route: 048
     Dates: start: 20130415, end: 20130715
  14. MINOLIS [Concomitant]
     Indication: PRODUCT USED FOR UNKNOWN INDICATION
     Route: 065
     Dates: start: 20110302
  15. RUBOZINC [Concomitant]
     Active Substance: ZINC GLUCONATE
     Route: 065
     Dates: start: 20150424

REACTIONS (11)
  - Muscle rupture [Recovered/Resolved]
  - Depression [Not Recovered/Not Resolved]
  - Tinnitus [Not Recovered/Not Resolved]
  - Myalgia [Not Recovered/Not Resolved]
  - Middle insomnia [Not Recovered/Not Resolved]
  - Ligament rupture [Recovered/Resolved]
  - Night sweats [Not Recovered/Not Resolved]
  - Photophobia [Not Recovered/Not Resolved]
  - Arthralgia [Not Recovered/Not Resolved]
  - Haematoma [Not Recovered/Not Resolved]
  - Head discomfort [Not Recovered/Not Resolved]
